FAERS Safety Report 12419959 (Version 1)
Quarter: 2016Q2

REPORT INFORMATION
  Report Type: Spontaneous
  Country: PK (occurrence: PK)
  Receive Date: 20160531
  Receipt Date: 20160531
  Transmission Date: 20160815
  Serious: Yes (Death)
  Sender: FDA-Public Use
  Company Number: PK-SA-2016SA101735

PATIENT
  Age: 65 Year
  Sex: Male

DRUGS (1)
  1. JEVTANA [Suspect]
     Active Substance: CABAZITAXEL
     Indication: PROSTATE CANCER
     Route: 042
     Dates: start: 201604, end: 201604

REACTIONS (2)
  - Metastasis [Fatal]
  - Lung disorder [Fatal]

NARRATIVE: CASE EVENT DATE: 201605
